FAERS Safety Report 9536963 (Version 2)
Quarter: 2013Q4

REPORT INFORMATION
  Report Type: Spontaneous
  Country: US (occurrence: US)
  Receive Date: 20130919
  Receipt Date: 20131001
  Transmission Date: 20140711
  Serious: Yes (Other)
  Sender: FDA-Public Use
  Company Number: US-PFIZER INC-2013267313

PATIENT
  Age: 86 Year
  Sex: Female
  Weight: 41.27 kg

DRUGS (5)
  1. XANAX [Suspect]
     Indication: DEPRESSION
     Dosage: UNK
     Route: 048
  2. XANAX [Suspect]
     Indication: ANXIETY
     Dosage: UNK, 4X/DAY
     Route: 048
  3. CENTRUM SILVER WOMEN^S 50+ [Suspect]
     Dosage: UNK, DAILY
     Route: 048
  4. PAXIL [Concomitant]
     Indication: DEPRESSION
     Dosage: 10 MG, 2X/DAY
  5. PAXIL [Concomitant]
     Indication: ANXIETY

REACTIONS (6)
  - Choking [Unknown]
  - Throat irritation [Unknown]
  - Dysphagia [Unknown]
  - Drug intolerance [Unknown]
  - Intentional drug misuse [Unknown]
  - Off label use [Unknown]
